FAERS Safety Report 6435019-2 (Version None)
Quarter: 2009Q4

REPORT INFORMATION
  Report Type: 
  Country: None (occurrence: None)
  Receive Date: 20091110
  Receipt Date: 20091028
  Transmission Date: 20100525
  Serious: Yes (Other)
  Sender: FDA-Public Use
  Company Number: PHHY2009GB33361

PATIENT
  Sex: Male

DRUGS (3)
  1. CLOZARIL [Suspect]
     Indication: SCHIZOPHRENIA
     Dosage: UNK
     Dates: start: 20080319, end: 20090806
  2. CLOZARIL [Suspect]
     Dosage: UNK
     Dates: start: 20090904
  3. NEULASTA [Concomitant]

REACTIONS (4)
  - LUNG NEOPLASM MALIGNANT [None]
  - MENTAL DISORDER [None]
  - NEUTROPHIL COUNT DECREASED [None]
  - WHITE BLOOD CELL COUNT DECREASED [None]
